FAERS Safety Report 16594918 (Version 1)
Quarter: 2019Q3

REPORT INFORMATION
  Report Type: Spontaneous
  Country: BR (occurrence: BR)
  Receive Date: 20190718
  Receipt Date: 20190718
  Transmission Date: 20191004
  Serious: Yes (Other)
  Sender: FDA-Public Use
  Company Number: BR-JNJFOC-20190708860

PATIENT
  Sex: Male

DRUGS (1)
  1. RISPERDAL CONSTA [Suspect]
     Active Substance: RISPERIDONE
     Indication: SCHIZOPHRENIA
     Route: 030

REACTIONS (7)
  - Fall [Unknown]
  - Hypersomnia [Not Recovered/Not Resolved]
  - Abdominal pain [Recovering/Resolving]
  - Gastritis [Unknown]
  - Asthenia [Unknown]
  - Chest pain [Recovering/Resolving]
  - Weight decreased [Unknown]
